FAERS Safety Report 7429774-2 (Version None)
Quarter: 2011Q2

REPORT INFORMATION
  Report Type: 
  Country: None (occurrence: None)
  Receive Date: 20110421
  Receipt Date: 20110407
  Transmission Date: 20111010
  Serious: Yes (Hospitalization, Other)
  Sender: FDA-Public Use
  Company Number: PHHY2011FR29487

PATIENT
  Sex: Male

DRUGS (8)
  1. GLEEVEC [Suspect]
     Dosage: 400 MG, DAILY
     Route: 048
     Dates: start: 20110127
  2. SIMVASTATIN [Concomitant]
     Dosage: UNK
     Dates: start: 20110311
  3. GLEEVEC [Suspect]
     Indication: GASTROINTESTINAL STROMAL TUMOUR
     Dosage: 400 MG, DAILY
     Route: 048
     Dates: start: 20100701
  4. GLEEVEC [Suspect]
     Dosage: 800 MG, DAILY
     Route: 048
     Dates: start: 20101001
  5. COAPROVEL [Concomitant]
     Dosage: UNK
     Dates: start: 20110311
  6. COAPROVEL [Concomitant]
     Dates: end: 20110220
  7. LEVOTHYROX [Concomitant]
     Dosage: 125 UG
  8. SIMVASTATIN [Concomitant]
     Dates: end: 20110306

REACTIONS (13)
  - LUNG INFECTION [None]
  - ASTHENIA [None]
  - DECREASED APPETITE [None]
  - FALL [None]
  - HYPOCALCAEMIA [None]
  - FRACTURE [None]
  - RALES [None]
  - URINE SODIUM INCREASED [None]
  - HYPONATRAEMIA [None]
  - HEAD INJURY [None]
  - PARANEOPLASTIC SYNDROME [None]
  - HYPOCHLORAEMIA [None]
  - GLYCOSURIA [None]
